FAERS Safety Report 10151534 (Version 2)
Quarter: 2014Q2

REPORT INFORMATION
  Report Type: Report from Study
  Country: IL (occurrence: IL)
  Receive Date: 20140504
  Receipt Date: 20140504
  Transmission Date: 20141212
  Serious: Yes (Other)
  Sender: FDA-Public Use
  Company Number: IL-US-EMD SERONO, INC.-7274789

PATIENT
  Age: 31 Year
  Sex: Female

DRUGS (2)
  1. REBIF [Suspect]
     Indication: RELAPSING-REMITTING MULTIPLE SCLEROSIS
     Route: 058
     Dates: start: 2009, end: 20140302
  2. REBIF [Suspect]
     Dosage: ON TITRATION PERIOD
     Dates: start: 20140420

REACTIONS (2)
  - Abortion induced [Recovered/Resolved]
  - Maternal exposure timing unspecified [Recovered/Resolved]
